FAERS Safety Report 12206135 (Version 1)
Quarter: 2016Q1

REPORT INFORMATION
  Report Type: Spontaneous
  Country: US (occurrence: US)
  Receive Date: 20160324
  Receipt Date: 20160324
  Transmission Date: 20160526
  Serious: No
  Sender: FDA-Public Use
  Company Number: US-LEO PHARMA-240831

PATIENT
  Age: 63 Year
  Sex: Female

DRUGS (1)
  1. PICATO [Suspect]
     Active Substance: INGENOL MEBUTATE
     Indication: ACTINIC KERATOSIS
     Route: 061
     Dates: start: 20160311, end: 20160313

REACTIONS (8)
  - Application site erythema [Recovering/Resolving]
  - Drug administered at inappropriate site [Unknown]
  - Application site dryness [Not Recovered/Not Resolved]
  - Application site reaction [Not Recovered/Not Resolved]
  - Drug administration error [Unknown]
  - Incorrect dose administered [Unknown]
  - Application site swelling [Recovering/Resolving]
  - Application site vesicles [Recovered/Resolved]

NARRATIVE: CASE EVENT DATE: 20160314
